FAERS Safety Report 11242936 (Version 1)
Quarter: 2015Q3

REPORT INFORMATION
  Report Type: Spontaneous
  Country: US (occurrence: None)
  Receive Date: 20150702
  Receipt Date: 20150702
  Transmission Date: 20151125
  Serious: Yes (Other)
  Sender: FDA-Public Use
  Company Number: UCM201506-000447

PATIENT

DRUGS (2)
  1. DIVALPROEX SODIUM (DIVALPROEX SODIUM) (DIVALPROEX SODIUM) [Suspect]
     Active Substance: DIVALPROEX SODIUM
  2. PHENYTOIN (PHENYTOIN) [Suspect]
     Active Substance: PHENYTOIN

REACTIONS (3)
  - Asthenia [None]
  - Encephalopathy [None]
  - Asterixis [None]
